FAERS Safety Report 8303706-7 (Version None)
Quarter: 2012Q2

REPORT INFORMATION
  Report Type: 
  Country: None (occurrence: None)
  Receive Date: 20120423
  Receipt Date: 20120416
  Transmission Date: 20120825
  Serious: No
  Sender: FDA-Public Use
  Company Number: US-PFIZER INC-2012049298

PATIENT
  Sex: Male

DRUGS (2)
  1. XALKORI [Suspect]
     Dosage: 200 MG, 1X/DAY
     Dates: start: 20120322
  2. XALKORI [Suspect]
     Indication: LUNG NEOPLASM MALIGNANT
     Dosage: 250 MG, 1X/DAY
     Dates: start: 20120215

REACTIONS (4)
  - RASH [None]
  - NAUSEA [None]
  - ASTHENIA [None]
  - FATIGUE [None]
